FAERS Safety Report 20825824 (Version 1)
Quarter: 2022Q2

REPORT INFORMATION
  Report Type: Report from Study
  Country: US (occurrence: US)
  Receive Date: 20220513
  Receipt Date: 20220513
  Transmission Date: 20220721
  Serious: No
  Sender: FDA-Public Use
  Company Number: US-PHARMACOVIGILANCE-US-KAD-22-00276

PATIENT
  Sex: Female

DRUGS (1)
  1. REZUROCK [Suspect]
     Active Substance: BELUMOSUDIL
     Indication: Product used for unknown indication
     Dosage: 200 MILLIGRAM, BID
     Route: 065
     Dates: start: 20220209

REACTIONS (6)
  - Abdominal distension [Unknown]
  - Depressed mood [Unknown]
  - Diarrhoea [Unknown]
  - Dyspnoea [Unknown]
  - Condition aggravated [Unknown]
  - Fatigue [Unknown]
